FAERS Safety Report 10871990 (Version 1)
Quarter: 2015Q1

REPORT INFORMATION
  Report Type: Spontaneous
  Country: IS (occurrence: IS)
  Receive Date: 20150226
  Receipt Date: 20150226
  Transmission Date: 20150721
  Serious: Yes (Hospitalization)
  Sender: FDA-Public Use
  Company Number: IS-ACTAVIS-2015-03601

PATIENT
  Age: 60 Year
  Sex: Female

DRUGS (1)
  1. CARDOSIN RETARD [Suspect]
     Active Substance: DOXAZOSIN MESYLATE
     Indication: ESSENTIAL HYPERTENSION
     Dosage: UNK UNK, UNKNOWN
     Route: 048
     Dates: start: 20150203, end: 20150204

REACTIONS (5)
  - Head injury [Unknown]
  - Syncope [Unknown]
  - Fall [Unknown]
  - Loss of consciousness [Unknown]
  - Concussion [Unknown]

NARRATIVE: CASE EVENT DATE: 20150204
